FAERS Safety Report 10194947 (Version 1)
Quarter: 2014Q2

REPORT INFORMATION
  Report Type: Spontaneous
  Country: US (occurrence: US)
  Receive Date: 20140526
  Receipt Date: 20140526
  Transmission Date: 20141212
  Serious: Yes (Hospitalization)
  Sender: FDA-Public Use
  Company Number: US-PFIZER INC-2014142697

PATIENT
  Age: 81 Year
  Sex: Female
  Weight: 49.89 kg

DRUGS (2)
  1. PROCARDIA [Suspect]
     Indication: CARDIAC DISORDER
     Dosage: UNK
  2. METOPROLOL [Concomitant]
     Indication: HYPERTENSION
     Dosage: UNK, 2X/DAY
     Route: 048

REACTIONS (1)
  - Myocardial infarction [Unknown]
